FAERS Safety Report 6357914-5 (Version None)
Quarter: 2009Q3

REPORT INFORMATION
  Report Type: 
  Country: None (occurrence: None)
  Receive Date: 20090911
  Receipt Date: 20090831
  Transmission Date: 20100115
  Serious: Yes (Death, Disabling, Other)
  Sender: FDA-Public Use
  Company Number: 2007-00046

PATIENT
  Age: 60 Year
  Sex: Male
  Weight: 45 kg

DRUGS (13)
  1. VELCADE [Suspect]
     Indication: MULTIPLE MYELOMA
     Dosage: 1.90 MG ; 1.50 MG, INTRAVENOUS
     Route: 042
     Dates: start: 20061212, end: 20070130
  2. VELCADE [Suspect]
     Indication: MULTIPLE MYELOMA
     Dosage: 1.90 MG ; 1.50 MG, INTRAVENOUS
     Route: 042
     Dates: start: 20070316, end: 20070323
  3. ALBUMIN (HUMAN) [Suspect]
     Indication: DRUG USE FOR UNKNOWN INDICATION
     Dosage: 50.00 ML
     Dates: start: 20061214, end: 20061220
  4. DEXAMETHASONE [Concomitant]
  5. MUCOSTA (REBAMIPIDE) [Concomitant]
  6. ZANTAC 150 [Concomitant]
  7. SULFAMETHOXAZOLE AND TRIMETHOPRIM [Concomitant]
  8. DIFLUCAN [Concomitant]
  9. BIOFERMIN R (STREPTOCOCCUS FAECALIS) [Concomitant]
  10. ZOVIRAX [Concomitant]
  11. NASEA (RAMOSETRON HYDROCHLORIDE) [Concomitant]
  12. VOLTAREN [Concomitant]
  13. ZOLPIDEM TARTRATE [Concomitant]

REACTIONS (13)
  - DISEASE PROGRESSION [None]
  - DYSURIA [None]
  - ELECTROCARDIOGRAM T WAVE ABNORMAL [None]
  - HYPERKALAEMIA [None]
  - MASS [None]
  - NEUROPATHY PERIPHERAL [None]
  - NEUTROPENIA [None]
  - NEUTROPHIL COUNT DECREASED [None]
  - NUCLEAR MAGNETIC RESONANCE IMAGING ABNORMAL [None]
  - PARAPLEGIA [None]
  - PYREXIA [None]
  - THROMBOCYTOPENIA [None]
  - TUMOUR LYSIS SYNDROME [None]
